FAERS Safety Report 6543615-7 (Version None)
Quarter: 2010Q1

REPORT INFORMATION
  Report Type: 
  Country: None (occurrence: None)
  Receive Date: 20100119
  Receipt Date: 20100119
  Transmission Date: 20100710
  Serious: No
  Sender: FDA-Public Use
  Company Number: None

PATIENT
  Sex: Female

DRUGS (2)
  1. DEPAKOTE [Suspect]
     Indication: BIPOLAR DISORDER
     Dates: start: 20091001
  2. DEPAKOTE [Suspect]
     Indication: BIPOLAR DISORDER
     Dates: start: 20091201

REACTIONS (7)
  - ABDOMINAL PAIN UPPER [None]
  - BIPOLAR DISORDER [None]
  - DISEASE RECURRENCE [None]
  - HEADACHE [None]
  - NAUSEA [None]
  - PRODUCT SUBSTITUTION ISSUE [None]
  - TREATMENT NONCOMPLIANCE [None]
